FAERS Safety Report 5271961-6 (Version None)
Quarter: 2007Q1

REPORT INFORMATION
  Report Type: 
  Country: None (occurrence: None)
  Receive Date: 20061219
  Receipt Date: 20051017
  Transmission Date: 20070707
  Serious: Yes (Other)
  Sender: FDA-Public Use
  Company Number: COMPLAINT # 2336

PATIENT
  Sex: Male

DRUGS (1)
  1. FLORAZEPAM HCL CAPSULES, USP 15 MG C-IV, WEST-WARD [Suspect]
     Dates: start: 20051001

REACTIONS (1)
  - DRUG INEFFECTIVE [None]
